FAERS Safety Report 7544119-5 (Version None)
Quarter: 2011Q2

REPORT INFORMATION
  Report Type: 
  Country: None (occurrence: None)
  Receive Date: 20110613
  Receipt Date: 20051028
  Transmission Date: 20111010
  Serious: Yes (Hospitalization, Other)
  Sender: FDA-Public Use
  Company Number: PHMT2005CA00479

PATIENT
  Sex: Female

DRUGS (14)
  1. ZOCOR [Concomitant]
     Dosage: UNK
  2. COMTAN [Suspect]
     Indication: PARKINSON'S DISEASE
     Dosage: 200 MG, TID
     Route: 048
     Dates: start: 20051004, end: 20051012
  3. NITROLINGUAL PUMPSPRAY [Concomitant]
     Dosage: 0.4 MG, PRN
     Route: 050
  4. LASIX [Concomitant]
     Dosage: UNK
  5. SINEMET [Concomitant]
     Dosage: 100/25
  6. APO-ISDN [Concomitant]
     Dosage: 30 MG, TID
  7. ATROVENT [Concomitant]
     Dosage: 20 MG, TID
  8. SERTRALINE HYDROCHLORIDE [Concomitant]
     Dosage: 35 MG, UNK
  9. BISACODYL [Concomitant]
     Dosage: UNK
  10. LACTULOSE [Concomitant]
     Dosage: 15 MG, QD
     Route: 048
  11. NITRGLYCERIN TRANSDERMAL SYSTEM [Concomitant]
     Dosage: 0.6 MG, QD
     Route: 062
  12. ALTACE [Concomitant]
     Dosage: 2.5 MG, QD
  13. NOVASEN [Concomitant]
     Dosage: 325 MG, QD
  14. ADALAT [Concomitant]
     Dosage: UNK

REACTIONS (4)
  - ANGINA PECTORIS [None]
  - ANXIETY [None]
  - CARDIAC DISORDER [None]
  - OEDEMA [None]
